FAERS Safety Report 5496868-0 (Version None)
Quarter: 2007Q4

REPORT INFORMATION
  Report Type: 
  Country: None (occurrence: None)
  Receive Date: 20071025
  Receipt Date: 20070829
  Transmission Date: 20080405
  Serious: No
  Sender: FDA-Public Use
  Company Number: A0677362A

PATIENT
  Age: 64 Year
  Sex: Female

DRUGS (9)
  1. ADVAIR DISKUS 100/50 [Suspect]
     Indication: CHRONIC OBSTRUCTIVE PULMONARY DISEASE
     Dosage: 1PUFF TWICE PER DAY
     Route: 055
     Dates: start: 20050101
  2. PROZAC [Concomitant]
  3. ELAVIL [Concomitant]
  4. DIGITEK [Concomitant]
  5. COREG [Concomitant]
  6. LIPITOR [Concomitant]
  7. LYRICA [Concomitant]
  8. TOPAMAX [Concomitant]
  9. PROVENTIL [Concomitant]

REACTIONS (5)
  - CHEST DISCOMFORT [None]
  - DYSPNOEA [None]
  - EUPHORIC MOOD [None]
  - PHARMACEUTICAL PRODUCT COMPLAINT [None]
  - WHEEZING [None]
